FAERS Safety Report 7861225-6 (Version None)
Quarter: 2011Q4

REPORT INFORMATION
  Report Type: 
  Country: None (occurrence: None)
  Receive Date: 20111027
  Receipt Date: 20111025
  Transmission Date: 20120403
  Serious: Yes (Hospitalization)
  Sender: FDA-Public Use
  Company Number: US-PURDUE-USA-2011-0074302

PATIENT
  Sex: Male
  Weight: 85.261 kg

DRUGS (3)
  1. LORAZEPAM [Concomitant]
     Indication: ANXIETY
     Dosage: 2 MG, UNK
  2. OXYCONTIN [Suspect]
     Dosage: 10 MG, UNK
     Dates: start: 20090604, end: 20100913
  3. OXYCONTIN [Suspect]
     Indication: ARTHRALGIA
     Dosage: 10 MG, Q12H
     Dates: start: 20050101

REACTIONS (3)
  - HIP ARTHROPLASTY [None]
  - TINNITUS [None]
  - DIZZINESS [None]
